FAERS Safety Report 9127787 (Version 1)
Quarter: 2013Q1

REPORT INFORMATION
  Report Type: Spontaneous
  Country: US (occurrence: US)
  Receive Date: 20130228
  Receipt Date: 20130228
  Transmission Date: 20140127
  Serious: No
  Sender: FDA-Public Use
  Company Number: US-GLAXOSMITHKLINE-A0999271A

PATIENT
  Sex: Female

DRUGS (5)
  1. LAMICTAL [Suspect]
     Indication: DEPRESSION
     Dosage: 25MG PER DAY
     Route: 048
     Dates: start: 20121010, end: 20121013
  2. KLONOPIN [Concomitant]
  3. ZOLOFT [Concomitant]
  4. EYE CREAM (NOS) [Concomitant]
  5. FACE CREAM [Concomitant]

REACTIONS (1)
  - Rash [Recovering/Resolving]
